FAERS Safety Report 8381929-9 (Version None)
Quarter: 2012Q2

REPORT INFORMATION
  Report Type: 
  Country: None (occurrence: None)
  Receive Date: 20120524
  Receipt Date: 20120509
  Transmission Date: 20120825
  Serious: Yes (Other)
  Sender: FDA-Public Use
  Company Number: CA-JNJFOC-20120509821

PATIENT
  Sex: Male
  Weight: 130 kg

DRUGS (4)
  1. REMICADE [Suspect]
     Indication: RHEUMATOID ARTHRITIS
     Route: 042
     Dates: start: 20080101
  2. LIPITOR [Concomitant]
     Dates: start: 20080101
  3. COUMADIN [Concomitant]
     Route: 048
     Dates: start: 20040101
  4. METHOTREXATE [Concomitant]

REACTIONS (1)
  - NEOPLASM [None]
